FAERS Safety Report 18085672 (Version 1)
Quarter: 2020Q3

REPORT INFORMATION
  Report Type: Spontaneous
  Country: US (occurrence: US)
  Receive Date: 20200728
  Receipt Date: 20200728
  Transmission Date: 20201103
  Serious: Yes (Death, Other)
  Sender: FDA-Public Use
  Company Number: None

PATIENT
  Age: 60 Year
  Sex: Female
  Weight: 81.3 kg

DRUGS (4)
  1. ENOXAPARIN 73MG Q12H [Concomitant]
     Dates: start: 20200710
  2. AMIODARONE IVPB [Concomitant]
     Dates: start: 20200712
  3. REMDESIVIR. [Suspect]
     Active Substance: REMDESIVIR
     Indication: COVID-19
     Dosage: ?          OTHER FREQUENCY:ONCE;?
     Route: 040
     Dates: start: 20200712, end: 20200713
  4. AZITHROMYCIN 500MG Q24H [Concomitant]
     Dates: start: 20200710

REACTIONS (4)
  - Glomerular filtration rate decreased [None]
  - Alanine aminotransferase increased [None]
  - Blood creatinine increased [None]
  - Aspartate aminotransferase increased [None]

NARRATIVE: CASE EVENT DATE: 20200713
